FAERS Safety Report 13067928 (Version 5)
Quarter: 2018Q2

REPORT INFORMATION
  Report Type: Spontaneous
  Country: DE (occurrence: DE)
  Receive Date: 20161228
  Receipt Date: 20180509
  Transmission Date: 20180711
  Serious: Yes (Death, Hospitalization, Other)
  Sender: FDA-Public Use
  Company Number: DE-AUROBINDO-AUR-APL-2016-15902

PATIENT
  Age: 79 Year
  Sex: Female
  Weight: 50 kg

DRUGS (13)
  1. DABIGATRAN [Suspect]
     Active Substance: DABIGATRAN
  2. PRADAXA [Suspect]
     Active Substance: DABIGATRAN ETEXILATE MESYLATE
     Indication: CEREBROVASCULAR ACCIDENT
     Dosage: ()
  3. PRADAXA [Suspect]
     Active Substance: DABIGATRAN ETEXILATE MESYLATE
     Dosage: DAILY DOSE: 220 MG MILLIGRAM(S) EVERY DAY
     Route: 048
  4. DABIGATRAN [Suspect]
     Active Substance: DABIGATRAN
     Dosage: 110 MG, BID
     Route: 065
  5. PRAXBIND [Suspect]
     Active Substance: IDARUCIZUMAB
     Indication: HAEMORRHAGE
     Dosage: ()
     Route: 065
  6. PRADAXA [Suspect]
     Active Substance: DABIGATRAN ETEXILATE MESYLATE
     Indication: ATRIAL FIBRILLATION
     Dosage: DAILY DOSE: 300 MG MILLIGRAM(S) EVERY DAY
     Route: 065
  7. DABIGATRAN [Suspect]
     Active Substance: DABIGATRAN
     Dosage: 150 MG, BID
     Route: 065
  8. CLOPIDOGREL [Suspect]
     Active Substance: CLOPIDOGREL BISULFATE
     Indication: CEREBROVASCULAR ACCIDENT
     Dosage: 75 MG, ONCE A DAY
     Route: 065
  9. DABIGATRAN [Suspect]
     Active Substance: DABIGATRAN
     Indication: CEREBROVASCULAR ACCIDENT
     Dosage: 110 MG, TWO TIMES A DAY
     Route: 065
  10. DABIGATRAN [Suspect]
     Active Substance: DABIGATRAN
     Indication: PROPHYLAXIS
  11. PRAXBIND [Suspect]
     Active Substance: IDARUCIZUMAB
     Dosage: ()
  12. PRADAXA [Suspect]
     Active Substance: DABIGATRAN ETEXILATE MESYLATE
     Dosage: DAILY DOSE: 300 MG MILLIGRAM(S) EVERY DAY
     Route: 065
  13. PRAXBIND [Suspect]
     Active Substance: IDARUCIZUMAB
     Dosage: UNK ()
     Route: 065

REACTIONS (15)
  - Abdominal discomfort [Unknown]
  - Creatinine renal clearance decreased [Unknown]
  - Activated partial thromboplastin time prolonged [Unknown]
  - Coagulation factor increased [Unknown]
  - Vomiting [Unknown]
  - Rectal perforation [Fatal]
  - Abdominal pain [Unknown]
  - Ileus paralytic [Fatal]
  - Gastrointestinal haemorrhage [Not Recovered/Not Resolved]
  - Peritonitis [Fatal]
  - Haemorrhage [Fatal]
  - Coagulation time prolonged [Unknown]
  - Coagulopathy [Fatal]
  - Anaemia [Unknown]
  - Prothrombin time prolonged [Unknown]
